FAERS Safety Report 4268083-X (Version None)
Quarter: 2004Q1

REPORT INFORMATION
  Report Type: 
  Country: None (occurrence: None)
  Receive Date: 20040109
  Receipt Date: 20040109
  Transmission Date: 20041129
  Serious: Yes (Hospitalization)
  Sender: FDA-Public Use
  Company Number: None

PATIENT
  Sex: Male
  Weight: 87.0906 kg

DRUGS (21)
  1. HEPARIN [Suspect]
     Indication: DEEP VEIN THROMBOSIS
     Dosage: 3500 UNITS Q8 SUBCUTANEOUS
     Route: 058
     Dates: start: 20031117, end: 20031119
  2. HEPARIN [Suspect]
     Indication: PROPHYLAXIS
     Dosage: 3500 UNITS Q8 SUBCUTANEOUS
     Route: 058
     Dates: start: 20031117, end: 20031119
  3. HEPARIN [Suspect]
     Indication: PULMONARY EMBOLISM
     Dosage: 3500 UNITS Q8 SUBCUTANEOUS
     Route: 058
     Dates: start: 20031117, end: 20031119
  4. CEFAZOLIN [Concomitant]
  5. METRONIDAZOLE [Concomitant]
  6. PHENYLEPHRINE [Concomitant]
  7. FENTANYL [Concomitant]
  8. FENTANYL/BUPVICAINE [Concomitant]
  9. DIGOXIN [Concomitant]
  10. METOPROLOL [Concomitant]
  11. NITROGLYCERIN [Concomitant]
  12. FUROSEMIDE [Concomitant]
  13. RANITIDINE [Concomitant]
  14. INSULIN REG [Concomitant]
  15. LR [Concomitant]
  16. MORPHINE SULF [Concomitant]
  17. MIDAZOLAM HCL [Concomitant]
  18. DIPHENHYDRAMINE HCL [Concomitant]
  19. METOCLOPRAMIDE [Concomitant]
  20. NALOXONE [Concomitant]
  21. ONDANSETRON [Concomitant]

REACTIONS (1)
  - THROMBOCYTOPENIA [None]
